FAERS Safety Report 9699108 (Version 1)
Quarter: 2013Q4

REPORT INFORMATION
  Report Type: Spontaneous
  Country: US (occurrence: DE)
  Receive Date: 20131120
  Receipt Date: 20131120
  Transmission Date: 20140711
  Serious: Yes (Other)
  Sender: FDA-Public Use
  Company Number: DE-FRI-1000051570

PATIENT
  Sex: Male

DRUGS (1)
  1. ROFLUMILAST [Suspect]

REACTIONS (1)
  - Gamma-glutamyltransferase increased [Unknown]
